FAERS Safety Report 17334415 (Version 3)
Quarter: 2020Q4

REPORT INFORMATION
  Report Type: Spontaneous
  Country: JP (occurrence: JP)
  Receive Date: 20200128
  Receipt Date: 20201215
  Transmission Date: 20210113
  Serious: Yes (Death, Life-Threatening, Other)
  Sender: FDA-Public Use
  Company Number: JP-UCBSA-2020002977

PATIENT
  Age: 20 Year
  Sex: Female
  Weight: 164 kg

DRUGS (2)
  1. E KEPPRA [Suspect]
     Active Substance: LEVETIRACETAM
     Indication: EPILEPSY
     Dosage: 250 MILLIGRAM, 2X/DAY (BID)
     Route: 048
     Dates: end: 20200117
  2. VIMPAT [Suspect]
     Active Substance: LACOSAMIDE
     Indication: EPILEPSY
     Dosage: 50 MILLIGRAM, 2X/DAY (BID)
     Route: 048
     Dates: end: 20200117

REACTIONS (2)
  - Ventricular fibrillation [Fatal]
  - Postresuscitation encephalopathy [Unknown]

NARRATIVE: CASE EVENT DATE: 20200117
